FAERS Safety Report 4850671-0 (Version None)
Quarter: 2005Q4

REPORT INFORMATION
  Report Type: 
  Country: None (occurrence: None)
  Receive Date: 20051212
  Receipt Date: 20050913
  Transmission Date: 20060501
  Serious: Yes (Other)
  Sender: FDA-Public Use
  Company Number: CA-SP-2005-01801

PATIENT
  Age: 29 Year
  Sex: Male

DRUGS (1)
  1. TUBERSOL [Suspect]
     Indication: TUBERCULIN TEST
     Route: 023
     Dates: start: 20050823

REACTIONS (18)
  - ABDOMINAL DISCOMFORT [None]
  - BRADYCARDIA [None]
  - COLD SWEAT [None]
  - CONFUSIONAL STATE [None]
  - CONVULSION [None]
  - DIARRHOEA [None]
  - DIZZINESS [None]
  - GASTROINTESTINAL INFECTION [None]
  - HEART RATE DECREASED [None]
  - HYPERHIDROSIS [None]
  - HYPOGLYCAEMIA [None]
  - LOSS OF CONSCIOUSNESS [None]
  - NAUSEA [None]
  - SPEECH DISORDER [None]
  - SYNCOPE VASOVAGAL [None]
  - TONIC CLONIC MOVEMENTS [None]
  - UNRESPONSIVE TO VERBAL STIMULI [None]
  - VOMITING [None]
